FAERS Safety Report 21340715 (Version 1)
Quarter: 2022Q3

REPORT INFORMATION
  Report Type: Spontaneous
  Country: GB (occurrence: GB)
  Receive Date: 20220916
  Receipt Date: 20220916
  Transmission Date: 20221026
  Serious: Yes (Death)
  Sender: FDA-Public Use
  Company Number: GB-PFIZER INC-20687

PATIENT
  Age: 18 Year
  Sex: Female
  Weight: 55 kg

DRUGS (9)
  1. GENTAMICIN [Suspect]
     Active Substance: GENTAMICIN
     Indication: Lower respiratory tract infection
     Route: 065
  2. PHENYTOIN SODIUM [Suspect]
     Active Substance: PHENYTOIN SODIUM
     Indication: Seizure
     Route: 065
  3. PIPERACILLIN SODIUM\TAZOBACTAM SODIUM [Suspect]
     Active Substance: PIPERACILLIN SODIUM\TAZOBACTAM SODIUM
     Indication: Lower respiratory tract infection
     Route: 065
  4. CEFOTAXIME [Suspect]
     Active Substance: CEFOTAXIME SODIUM
     Indication: Meningitis
     Route: 065
  5. PHENYTOIN [Suspect]
     Active Substance: PHENYTOIN
     Indication: Seizure
     Route: 065
  6. ACYCLOVIR [Suspect]
     Active Substance: ACYCLOVIR
     Indication: Meningitis
     Route: 065
  7. ACYCLOVIR [Suspect]
     Active Substance: ACYCLOVIR
     Route: 065
  8. GENTAMICIN SULFATE [Suspect]
     Active Substance: GENTAMICIN SULFATE
     Indication: Lower respiratory tract infection
     Route: 065
  9. PREDNISOLONE [Concomitant]
     Active Substance: PREDNISOLONE
     Indication: Product used for unknown indication
     Route: 065

REACTIONS (1)
  - Toxic epidermal necrolysis [Fatal]

NARRATIVE: CASE EVENT DATE: 20081108
